FAERS Safety Report 7440841-X (Version None)
Quarter: 2011Q2

REPORT INFORMATION
  Report Type: 
  Country: None (occurrence: None)
  Receive Date: 20110427
  Receipt Date: 20110418
  Transmission Date: 20111010
  Serious: Yes (Hospitalization)
  Sender: FDA-Public Use
  Company Number: FR-PFIZER INC-2011083955

PATIENT
  Age: 72 Year
  Sex: Male

DRUGS (10)
  1. TAHOR [Concomitant]
     Dosage: 10 MG, 1X/DAY
  2. FOLINIC ACID [Suspect]
     Indication: COLON CANCER
     Dosage: 1 DF, CYCLIC (EVERY 15 DAYS)
     Route: 042
     Dates: start: 20101117, end: 20101222
  3. METFORMIN [Concomitant]
     Dosage: 1000 MG, 2X/DAY
  4. TRANDOLAPRIL [Concomitant]
     Dosage: 0.5 MG, 1X/DAY
  5. IKOREL [Concomitant]
     Dosage: 10 MG, 2X/DAY
  6. AVASTIN [Suspect]
     Dosage: 1 DF, CYCLIC (EVERY 15 DAYS)
     Route: 042
     Dates: start: 20101117, end: 20101222
  7. PLAVIX [Concomitant]
     Dosage: 75 MG, 1X/DAY
  8. FUROSEMIDE [Concomitant]
     Dosage: 40 MG, 1X/DAY
  9. CAMPTOSAR [Suspect]
     Indication: COLON CANCER
     Dosage: 1 DF, CYCLIC (EVERY 15 DAYS)
     Route: 042
     Dates: start: 20101117, end: 20101222
  10. FLUOROURACIL [Suspect]
     Indication: COLON CANCER
     Dosage: 1 DF, CYCLIC (EVERY 15 DAYS)
     Route: 042
     Dates: start: 20101117, end: 20101222

REACTIONS (12)
  - FEBRILE NEUTROPENIA [None]
  - LUNG DISORDER [None]
  - ABDOMINAL PAIN [None]
  - DEHYDRATION [None]
  - BRADYCARDIA [None]
  - VITAMIN D DEFICIENCY [None]
  - DECREASED APPETITE [None]
  - ANAEMIA [None]
  - MALNUTRITION [None]
  - DIARRHOEA [None]
  - HYPOTENSION [None]
  - HICCUPS [None]
